FAERS Safety Report 7213149-5 (Version None)
Quarter: 2011Q1

REPORT INFORMATION
  Report Type: 
  Country: None (occurrence: None)
  Receive Date: 20110106
  Receipt Date: 20110105
  Transmission Date: 20110831
  Serious: Yes (Other)
  Sender: FDA-Public Use
  Company Number: US-BRISTOL-MYERS SQUIBB COMPANY-15472657

PATIENT
  Age: 66 Year
  Sex: Female

DRUGS (10)
  1. ANTIBIOTICS [Concomitant]
  2. HYDROCHLOROTHIAZIDE [Concomitant]
  3. LISINOPRIL [Concomitant]
     Indication: HYPERTENSION
  4. PREDNISONE [Concomitant]
  5. SYNTHROID [Concomitant]
  6. PRILOSEC [Concomitant]
  7. VENTOLIN DS [Concomitant]
  8. ONGLYZA [Suspect]
     Indication: DIABETES MELLITUS
  9. ATROVENT [Concomitant]
  10. TRAVATAN [Concomitant]

REACTIONS (1)
  - BRONCHOPNEUMONIA [None]
